FAERS Safety Report 4485731-X (Version None)
Quarter: 2004Q4

REPORT INFORMATION
  Report Type: 
  Country: None (occurrence: None)
  Receive Date: 20041026
  Receipt Date: 20041013
  Transmission Date: 20050328
  Serious: Yes (Death)
  Sender: FDA-Public Use
  Company Number: US-JNJFOC-20040505667

PATIENT
  Sex: Male

DRUGS (6)
  1. DURAGESIC [Suspect]
     Route: 062
     Dates: start: 20040515, end: 20040516
  2. MORPHINE [Suspect]
     Indication: BACK PAIN
     Route: 042
  3. DILAUDID [Suspect]
     Indication: BACK PAIN
     Route: 042
  4. PHENERGAN [Suspect]
     Indication: BACK PAIN
     Route: 042
  5. VICODIN [Concomitant]
  6. VICODIN [Concomitant]
     Indication: BACK PAIN

REACTIONS (6)
  - CARDIAC ARREST [None]
  - COMA [None]
  - MULTI-ORGAN FAILURE [None]
  - RESPIRATORY DEPRESSION [None]
  - RHABDOMYOLYSIS [None]
  - SOMNOLENCE [None]
